FAERS Safety Report 14122456 (Version 1)
Quarter: 2017Q4

REPORT INFORMATION
  Report Type: Spontaneous
  Country: IT (occurrence: IT)
  Receive Date: 20171024
  Receipt Date: 20171024
  Transmission Date: 20180321
  Serious: Yes (Other)
  Sender: FDA-Public Use
  Company Number: PHHY2017IT152835

PATIENT
  Age: 29 Year
  Sex: Male

DRUGS (8)
  1. HALOPERIDOL. [Concomitant]
     Active Substance: HALOPERIDOL
     Indication: BIPOLAR DISORDER
     Dosage: 6 MG, QD
     Route: 065
  2. VALPROATE SODIUM. [Suspect]
     Active Substance: VALPROATE SODIUM
     Indication: BIPOLAR DISORDER
     Dosage: 1000 MG, QD
     Route: 048
  3. VALPROATE SODIUM. [Suspect]
     Active Substance: VALPROATE SODIUM
     Dosage: 1800 MG, QD
     Route: 048
  4. CLOTIAPINE [Concomitant]
     Active Substance: CLOTHIAPINE
     Dosage: UNK
     Route: 048
  5. CHLORPROMAZINE. [Concomitant]
     Active Substance: CHLORPROMAZINE
     Indication: BIPOLAR DISORDER
     Dosage: 100 MG, QD
     Route: 065
  6. LORAZEPAM. [Concomitant]
     Active Substance: LORAZEPAM
     Indication: BIPOLAR DISORDER
     Dosage: 7.5 MG, QD
     Route: 048
  7. FLURAZEPAM [Concomitant]
     Active Substance: FLURAZEPAM\FLURAZEPAM HYDROCHLORIDE
     Indication: BIPOLAR DISORDER
     Dosage: 30 MG, QD
     Route: 048
  8. CLOTIAPINE [Concomitant]
     Active Substance: CLOTHIAPINE
     Indication: BIPOLAR DISORDER
     Dosage: 120 MG, QD
     Route: 030

REACTIONS (8)
  - Altered state of consciousness [Recovered/Resolved]
  - Lethargy [Recovered/Resolved]
  - Aggression [Recovered/Resolved]
  - Gait disturbance [Recovered/Resolved]
  - Mental status changes [Recovered/Resolved]
  - Agitation [Recovered/Resolved]
  - Hyperammonaemia [Recovering/Resolving]
  - Therapy non-responder [Unknown]
